FAERS Safety Report 8127322-5 (Version None)
Quarter: 2012Q1

REPORT INFORMATION
  Report Type: 
  Country: None (occurrence: None)
  Receive Date: 20120210
  Receipt Date: 20120203
  Transmission Date: 20120608
  Serious: Yes (Hospitalization, Other)
  Sender: FDA-Public Use
  Company Number: US-JNJFOC-20120202909

PATIENT
  Sex: Male
  Weight: 73.94 kg

DRUGS (4)
  1. ADDERALL 5 [Suspect]
     Indication: ATTENTION DEFICIT/HYPERACTIVITY DISORDER
     Route: 048
     Dates: start: 20100101, end: 20110101
  2. CONCERTA [Suspect]
     Route: 048
     Dates: start: 20110101, end: 20120201
  3. CONCERTA [Suspect]
     Indication: ATTENTION DEFICIT/HYPERACTIVITY DISORDER
     Route: 048
     Dates: start: 20040101, end: 20100101
  4. CONCERTA [Suspect]
     Route: 048
     Dates: start: 20110101, end: 20110101

REACTIONS (4)
  - PRODUCT QUALITY ISSUE [None]
  - EMOTIONAL DISORDER [None]
  - SOMNOLENCE [None]
  - DRUG DOSE OMISSION [None]
